FAERS Safety Report 4709766-4 (Version None)
Quarter: 2005Q3

REPORT INFORMATION
  Report Type: 
  Country: None (occurrence: None)
  Receive Date: 20050707
  Receipt Date: 20050617
  Transmission Date: 20060218
  Serious: Yes (Life-Threatening, Hospitalization, Other)
  Sender: FDA-Public Use
  Company Number: USA0506100760

PATIENT
  Age: 72 Year
  Sex: Female

DRUGS (12)
  1. HUMULIN R [Suspect]
     Indication: DIABETES MELLITUS
     Dosage: 36 U IN THE EVENING
     Dates: start: 19910701
  2. HUMULIN N [Suspect]
     Indication: DIABETES MELLITUS
     Dosage: 62 U IN THE MORNING
     Dates: start: 19910701, end: 20041101
  3. PLAVIX [Concomitant]
  4. IMDUR [Concomitant]
  5. ATENOLOL [Concomitant]
  6. NITROGLYCERIN [Concomitant]
  7. LASIX (FUROSEMIDE /00032601/) [Concomitant]
  8. PREVACID [Concomitant]
  9. LIPITOR [Concomitant]
  10. CORTISONE [Concomitant]
  11. FLORINEF [Concomitant]
  12. NOVOLIN N [Concomitant]

REACTIONS (23)
  - ABASIA [None]
  - ADRENOCORTICAL INSUFFICIENCY ACUTE [None]
  - ADRENOCORTICAL INSUFFICIENCY CHRONIC [None]
  - APNOEA [None]
  - CARDIAC DISORDER [None]
  - CARDIAC FAILURE [None]
  - CORONARY ARTERY OCCLUSION [None]
  - DIABETES MELLITUS INADEQUATE CONTROL [None]
  - DISEASE RECURRENCE [None]
  - DIVERTICULITIS [None]
  - DYSSTASIA [None]
  - FEELING ABNORMAL [None]
  - HAEMORRHAGE [None]
  - HYPERPHAGIA [None]
  - JOINT INJURY [None]
  - KIDNEY INFECTION [None]
  - LOSS OF CONSCIOUSNESS [None]
  - MALAISE [None]
  - OEDEMA [None]
  - PAIN IN EXTREMITY [None]
  - PHARMACEUTICAL PRODUCT COMPLAINT [None]
  - RESPIRATORY TRACT INFECTION [None]
  - THERAPY NON-RESPONDER [None]
